FAERS Safety Report 14201023 (Version 1)
Quarter: 2017Q4

REPORT INFORMATION
  Report Type: Spontaneous
  Country: US (occurrence: US)
  Receive Date: 20171117
  Receipt Date: 20171117
  Transmission Date: 20180321
  Serious: Yes (Hospitalization)
  Sender: FDA-Public Use
  Company Number: US-NOVOPROD-561385

PATIENT
  Age: 65 Year
  Sex: Female
  Weight: 81.63 kg

DRUGS (1)
  1. NOVOLOG [Suspect]
     Active Substance: INSULIN ASPART
     Indication: TYPE 2 DIABETES MELLITUS
     Dosage: 12 U, TID WITH MEALS
     Route: 058
     Dates: start: 200911

REACTIONS (3)
  - Product quality issue [Recovering/Resolving]
  - Drug ineffective [Recovering/Resolving]
  - Blood glucose increased [Recovering/Resolving]

NARRATIVE: CASE EVENT DATE: 20170821
